FAERS Safety Report 8812818 (Version 1)
Quarter: 2012Q4

REPORT INFORMATION
  Report Type: 
  Country: US (occurrence: US)
  Receive Date: 20120927
  Receipt Date: 20120927
  Transmission Date: 20130627
  Serious: Yes (Other)
  Sender: FDA-Public Use
  Company Number: US-AMGEN-USASP2012034010

PATIENT
  Age: 74 Year
  Sex: Male
  Weight: 78.5 kg

DRUGS (6)
  1. XGEVA [Suspect]
     Indication: METASTASES TO BONE
     Dosage: 120 mg, qmo
     Route: 058
     Dates: start: 20110405, end: 20120607
  2. XGEVA [Suspect]
     Dosage: 120 mg, q4wk
     Route: 058
     Dates: start: 201203
  3. NEULASTA [Concomitant]
     Indication: NEUTROPENIA
     Dosage: 6 mg, UNK
     Route: 058
     Dates: start: 20120406
  4. TAXOTERE [Concomitant]
     Indication: PROSTATE CANCER
     Dosage: 120 mg, UNK
     Route: 042
     Dates: start: 20120405
  5. VITAMIN D /00107901/ [Concomitant]
     Dosage: UNK UNK, qwk
  6. CALCIUM [Concomitant]

REACTIONS (2)
  - Hypocalcaemia [Not Recovered/Not Resolved]
  - Hypoalbuminaemia [Not Recovered/Not Resolved]
